FAERS Safety Report 23147314 (Version 1)
Quarter: 2023Q4

REPORT INFORMATION
  Report Type: Report from Study
  Country: US (occurrence: US)
  Receive Date: 20231106
  Receipt Date: 20231106
  Transmission Date: 20240109
  Serious: No
  Sender: FDA-Public Use
  Company Number: US-ACADIA PHARMACEUTICALS INC.-ACA-2023-TRF-004661

PATIENT
  Sex: Female

DRUGS (1)
  1. DAYBUE [Suspect]
     Active Substance: TROFINETIDE
     Dosage: 10 MILLILITER, BID
     Dates: start: 20231004

REACTIONS (5)
  - Abnormal faeces [Unknown]
  - Insomnia [Unknown]
  - Moaning [Unknown]
  - Crying [Unknown]
  - Underdose [Unknown]

NARRATIVE: CASE EVENT DATE: 20231001
